FAERS Safety Report 8469595-5 (Version None)
Quarter: 2012Q2

REPORT INFORMATION
  Report Type: 
  Country: None (occurrence: None)
  Receive Date: 20120626
  Receipt Date: 20120619
  Transmission Date: 20120825
  Serious: Yes (Hospitalization)
  Sender: FDA-Public Use
  Company Number: MX-BAXTER-2012BAX009364

PATIENT
  Sex: Male

DRUGS (12)
  1. DIANEAL [Suspect]
     Indication: RENAL FAILURE CHRONIC
     Dosage: 12 LITERS
     Route: 033
  2. LOSARTAN POTASSIUM [Concomitant]
     Indication: HYPERTENSION
  3. CALCIUM [Concomitant]
  4. PRAVASTATIN [Concomitant]
     Dosage: 1 TABLET
  5. PENTOXIFYLLINE [Concomitant]
  6. ISOSORBIDE [Concomitant]
  7. METHOCLOPRAMIDE [Concomitant]
  8. RANITIDINE [Concomitant]
  9. FERROUS SULFATE TAB [Concomitant]
  10. INSULIN [Concomitant]
  11. NIFEDIPINE [Concomitant]
     Indication: HYPERTENSION
  12. VITAMIN B COMPLEX CAP [Concomitant]

REACTIONS (3)
  - FLUID RETENTION [None]
  - CATHETER SITE INFECTION [None]
  - PNEUMONIA [None]
